FAERS Safety Report 9357697 (Version 1)
Quarter: 2013Q2

REPORT INFORMATION
  Report Type: Report from Study
  Country: BG (occurrence: BG)
  Receive Date: 20130620
  Receipt Date: 20130620
  Transmission Date: 20140414
  Serious: Yes (Hospitalization)
  Sender: FDA-Public Use
  Company Number: BG-SANTEN INC.-INC-13-000150

PATIENT
  Age: 73 Year
  Sex: Female

DRUGS (10)
  1. OFTAN [Suspect]
     Indication: OPEN ANGLE GLAUCOMA
     Route: 061
     Dates: start: 20110823
  2. TAFLUPROST 0.0015% [Suspect]
     Indication: OPEN ANGLE GLAUCOMA
     Route: 061
     Dates: start: 20110823
  3. FELOHEXAL [Concomitant]
     Route: 048
     Dates: start: 20070122
  4. RASOLTAN [Concomitant]
     Route: 048
     Dates: start: 20090105
  5. MECORLONG [Concomitant]
     Route: 048
     Dates: start: 20091104
  6. ATORIS [Concomitant]
     Route: 048
     Dates: start: 20070122
  7. GLIMEGAMMA [Concomitant]
     Route: 048
     Dates: start: 20101115
  8. AGAPURIN SR 400 [Concomitant]
     Route: 048
     Dates: start: 20070118
  9. SALURETIN (CHLORTALIDONE) [Concomitant]
     Route: 048
     Dates: start: 20070118
  10. ASPIRIN [Concomitant]
     Dates: start: 20070118

REACTIONS (1)
  - Asthma [Recovered/Resolved]
